FAERS Safety Report 19089351 (Version 1)
Quarter: 2021Q2

REPORT INFORMATION
  Report Type: Spontaneous
  Country: US (occurrence: US)
  Receive Date: 20210403
  Receipt Date: 20210403
  Transmission Date: 20210717
  Serious: Yes (Hospitalization, Other)
  Sender: FDA-Public Use
  Company Number: US-CIPLA LTD.-2021US02568

PATIENT

DRUGS (6)
  1. CARBOPLATIN. [Suspect]
     Active Substance: CARBOPLATIN
     Indication: RETINOBLASTOMA
     Dosage: 50 MILLIGRAM, ONE CYCLE (FIRST?LINE)
     Route: 013
  2. TOPOTECAN [Suspect]
     Active Substance: TOPOTECAN HYDROCHLORIDE
     Indication: RETINOBLASTOMA
     Dosage: 2 MILLIGRAM, 1ST CYCLE
     Route: 013
  3. TOPOTECAN [Suspect]
     Active Substance: TOPOTECAN HYDROCHLORIDE
     Dosage: 2 MILLIGRAM, 2ND CYCLE
     Route: 013
  4. MELPHALAN. [Suspect]
     Active Substance: MELPHALAN
     Indication: RETINOBLASTOMA
     Dosage: 3.4 MILLIGRAM (1ST CYCLE)
     Route: 013
  5. CARBOPLATIN. [Suspect]
     Active Substance: CARBOPLATIN
     Dosage: 50 MILLIGRAM, SECOND CYCLE
     Route: 013
  6. MELPHALAN. [Suspect]
     Active Substance: MELPHALAN
     Dosage: 3.4 MILLIGRAM (2ND CYCLE)
     Route: 013

REACTIONS (5)
  - Cytopenia [Unknown]
  - Swelling of eyelid [Unknown]
  - Neutropenia [Unknown]
  - Ear infection [Unknown]
  - Toxicity to various agents [Unknown]
